FAERS Safety Report 16404784 (Version 1)
Quarter: 2019Q2

REPORT INFORMATION
  Report Type: Report from Study
  Country: US (occurrence: US)
  Receive Date: 20190607
  Receipt Date: 20190607
  Transmission Date: 20190711
  Serious: Yes (Other)
  Sender: FDA-Public Use
  Company Number: PHEH2019US023455

PATIENT
  Sex: Female

DRUGS (1)
  1. ILARIS [Suspect]
     Active Substance: CANAKINUMAB
     Indication: MUCKLE-WELLS SYNDROME
     Route: 065

REACTIONS (4)
  - Stress [Unknown]
  - Muckle-Wells syndrome [Unknown]
  - Hypoacusis [Unknown]
  - Condition aggravated [Unknown]
